FAERS Safety Report 6149755-9 (Version None)
Quarter: 2009Q2

REPORT INFORMATION
  Report Type: 
  Country: None (occurrence: None)
  Receive Date: 20090409
  Receipt Date: 20090407
  Transmission Date: 20091009
  Serious: Yes (Life-Threatening, Other)
  Sender: FDA-Public Use
  Company Number: PHHY2009FR13282

PATIENT
  Sex: Male

DRUGS (13)
  1. VOLTAREN [Suspect]
     Indication: JOINT PROSTHESIS USER
     Dosage: 50 TO 100 MG PER WEEK
     Dates: start: 20081101, end: 20090201
  2. TAHOR [Suspect]
     Indication: CORONARY ARTERY DISEASE
     Dosage: 20 MG/DAY
     Dates: start: 20080101, end: 20090211
  3. KARDEGIC [Suspect]
     Indication: CORONARY ARTERY DISEASE
     Dosage: 75 MG/DAY
     Dates: start: 20080101, end: 20090211
  4. STAGID [Suspect]
     Indication: DIABETES MELLITUS
     Dosage: 2.1 G PER DAY
     Dates: start: 20080101, end: 20090211
  5. AMARYL [Suspect]
     Dosage: 2 MG PER DAY
     Dates: start: 20080901, end: 20090211
  6. DAFALGAN CODEINE [Suspect]
     Indication: JOINT PROSTHESIS USER
     Dosage: 0.5 TO 1 G PER WEEK
     Dates: start: 20081101, end: 20090201
  7. NOROCIN [Suspect]
     Indication: PYREXIA
     Dosage: 800 MG PER DAY
     Dates: start: 20090203, end: 20090208
  8. NOROCIN [Suspect]
     Indication: DIARRHOEA
  9. DICETEL [Suspect]
     Indication: PYREXIA
     Dosage: 100 MG PER DAY
     Dates: start: 20090203, end: 20090208
  10. DICETEL [Suspect]
     Indication: DIARRHOEA
  11. TIORFAN [Suspect]
     Indication: PYREXIA
     Dosage: 300 MG PER DAY
     Dates: start: 20090203, end: 20090208
  12. TIORFAN [Suspect]
     Indication: DIARRHOEA
  13. INSULIN [Concomitant]
     Indication: DIABETES MELLITUS

REACTIONS (9)
  - ABDOMINAL DISCOMFORT [None]
  - CHOLELITHIASIS [None]
  - CYTOLYTIC HEPATITIS [None]
  - DIARRHOEA [None]
  - HEPATIC CIRRHOSIS [None]
  - JAUNDICE [None]
  - MICROLITHIASIS [None]
  - NECROSIS [None]
  - PYREXIA [None]
